FAERS Safety Report 6503131-5 (Version None)
Quarter: 2009Q4

REPORT INFORMATION
  Report Type: 
  Country: None (occurrence: None)
  Receive Date: 20091217
  Receipt Date: 20091209
  Transmission Date: 20100525
  Serious: No
  Sender: FDA-Public Use
  Company Number: BR-ASTRAZENECA-2009SE31562

PATIENT
  Age: 17 Year
  Sex: Female
  Weight: 40.2 kg

DRUGS (8)
  1. SEROQUEL [Suspect]
     Indication: ANOREXIA NERVOSA
     Route: 048
     Dates: start: 20091001, end: 20091101
  2. SEROQUEL [Suspect]
     Route: 048
     Dates: start: 20091101, end: 20091101
  3. SEROQUEL [Suspect]
     Route: 048
     Dates: start: 20091101, end: 20091101
  4. SEROQUEL [Suspect]
     Route: 048
     Dates: start: 20091101, end: 20091101
  5. SEROQUEL [Suspect]
     Route: 048
     Dates: start: 20091101, end: 20091101
  6. SEROQUEL [Suspect]
     Route: 048
     Dates: start: 20091119, end: 20091128
  7. SEROQUEL [Suspect]
     Route: 048
     Dates: start: 20091129
  8. PAROXETINA [Concomitant]
     Indication: ANOREXIA NERVOSA
     Route: 048
     Dates: start: 20060101

REACTIONS (2)
  - HAEMOGLOBIN DECREASED [None]
  - OFF LABEL USE [None]
